FAERS Safety Report 7395485-5 (Version None)
Quarter: 2011Q2

REPORT INFORMATION
  Report Type: 
  Country: None (occurrence: None)
  Receive Date: 20110405
  Receipt Date: 20110331
  Transmission Date: 20111010
  Serious: Yes (Other)
  Sender: FDA-Public Use
  Company Number: MX-PFIZER INC-2011068397

PATIENT
  Sex: Female
  Weight: 6.3 kg

DRUGS (1)
  1. DOSTINEX [Suspect]
     Indication: HYPERPROLACTINAEMIA
     Dosage: 1 TABLET, ALTERNATE DAY
     Route: 064
     Dates: start: 20080201, end: 20090301

REACTIONS (6)
  - GROWTH RETARDATION [None]
  - DRUG EXPOSURE DURING PREGNANCY [None]
  - DEVELOPMENTAL DELAY [None]
  - CONVULSION [None]
  - FOETAL GROWTH RESTRICTION [None]
  - CLEFT LIP [None]
